FAERS Safety Report 11348667 (Version 1)
Quarter: 2015Q3

REPORT INFORMATION
  Report Type: Report from Study
  Country: CA (occurrence: CA)
  Receive Date: 20150806
  Receipt Date: 20150806
  Transmission Date: 20151125
  Serious: Yes (Death, Hospitalization, Other)
  Sender: FDA-Public Use
  Company Number: PHHY2015CA047772

PATIENT
  Age: 66 Year
  Sex: Male

DRUGS (2)
  1. LEVOCARB [Concomitant]
     Active Substance: CARBIDOPA\LEVODOPA
     Indication: PRODUCT USED FOR UNKNOWN INDICATION
     Dosage: 1 DF, QD
     Route: 065
  2. CLOZARIL [Suspect]
     Active Substance: CLOZAPINE
     Indication: PARKINSON^S DISEASE PSYCHOSIS
     Dosage: 37.5 MG, QD
     Route: 048
     Dates: start: 20101109

REACTIONS (4)
  - Dyspnoea [Fatal]
  - Dementia [Unknown]
  - Infection [Fatal]
  - Fall [Unknown]

NARRATIVE: CASE EVENT DATE: 20150318
